FAERS Safety Report 4952430-7 (Version None)
Quarter: 2006Q1

REPORT INFORMATION
  Report Type: 
  Country: None (occurrence: None)
  Receive Date: 20060323
  Receipt Date: 20060217
  Transmission Date: 20060701
  Serious: Yes (Hospitalization)
  Sender: FDA-Public Use
  Company Number: US-MERCK-0602USA05002

PATIENT
  Age: 76 Year
  Sex: Female
  Weight: 75 kg

DRUGS (10)
  1. VIOXX [Suspect]
     Indication: RHEUMATOID ARTHRITIS
     Route: 048
     Dates: start: 20010202, end: 20040930
  2. VIOXX [Suspect]
     Route: 048
     Dates: start: 20010202, end: 20040930
  3. VIOXX [Suspect]
     Indication: SPONDYLITIS
     Route: 048
     Dates: start: 20010202, end: 20040930
  4. VIOXX [Suspect]
     Route: 048
     Dates: start: 20010202, end: 20040930
  5. SYNTHROID [Concomitant]
     Indication: HYPOTHYROIDISM
     Route: 065
     Dates: start: 20020221
  6. ZANTAC [Concomitant]
     Indication: DYSPEPSIA
     Route: 065
     Dates: start: 19970903
  7. DETROL [Concomitant]
     Indication: HYPERTONIC BLADDER
     Route: 065
  8. DIOVAN [Concomitant]
     Route: 065
  9. FOSAMAX [Concomitant]
     Indication: OSTEOPOROSIS
     Route: 065
  10. LIPITOR [Concomitant]
     Indication: HYPERLIPIDAEMIA
     Route: 065
     Dates: start: 19990312

REACTIONS (9)
  - ARTERIOSCLEROSIS [None]
  - ARTHROPATHY [None]
  - BLADDER DISORDER [None]
  - BLOOD TRIGLYCERIDES INCREASED [None]
  - CEREBELLAR INFARCTION [None]
  - CEREBROVASCULAR ACCIDENT [None]
  - POST PROCEDURAL VOMITING [None]
  - PROCEDURAL PAIN [None]
  - PYREXIA [None]
